FAERS Safety Report 9166253 (Version 1)
Quarter: 2013Q1

REPORT INFORMATION
  Report Type: Spontaneous
  Country: BR (occurrence: BR)
  Receive Date: 20130315
  Receipt Date: 20130315
  Transmission Date: 20140127
  Serious: Yes (Other)
  Sender: FDA-Public Use
  Company Number: BR-ASTRAZENECA-2013SE15985

PATIENT
  Sex: Female

DRUGS (4)
  1. ATACAND [Suspect]
     Indication: BLOOD PRESSURE ABNORMAL
     Route: 048
     Dates: start: 2007, end: 201010
  2. ATACAND [Suspect]
     Indication: INFARCTION
     Route: 048
     Dates: start: 2007, end: 201010
  3. ATACAND [Suspect]
     Indication: BLOOD PRESSURE ABNORMAL
     Route: 048
     Dates: start: 201010
  4. ATACAND [Suspect]
     Indication: INFARCTION
     Route: 048
     Dates: start: 201010

REACTIONS (1)
  - Blood pressure systolic increased [Unknown]
